FAERS Safety Report 18872994 (Version 3)
Quarter: 2021Q1

REPORT INFORMATION
  Report Type: Report from Study
  Country: US (occurrence: US)
  Receive Date: 20210210
  Receipt Date: 20210331
  Transmission Date: 20210420
  Serious: No
  Sender: FDA-Public Use
  Company Number: NVSC2021US025384

PATIENT
  Sex: Female

DRUGS (1)
  1. COSENTYX [Suspect]
     Active Substance: SECUKINUMAB
     Indication: PSORIASIS
     Dosage: 300 MG, EVERY FOUR WEEKS
     Route: 058

REACTIONS (5)
  - Nasopharyngitis [Unknown]
  - Illness [Unknown]
  - Pain [Unknown]
  - Rhinorrhoea [Unknown]
  - Lymphadenopathy [Unknown]
